FAERS Safety Report 16608758 (Version 3)
Quarter: 2019Q4

REPORT INFORMATION
  Report Type: Spontaneous
  Country: CA (occurrence: CA)
  Receive Date: 20190722
  Receipt Date: 20191218
  Transmission Date: 20200122
  Serious: Yes (Other)
  Sender: FDA-Public Use
  Company Number: CA-PFIZER INC-2017464843

PATIENT
  Age: 48 Year
  Sex: Female

DRUGS (4)
  1. METHOTREXATE. [Concomitant]
     Active Substance: METHOTREXATE
     Dosage: 20 MG, WEEKLY
  2. XELJANZ [Suspect]
     Active Substance: TOFACITINIB CITRATE
     Indication: COLITIS ULCERATIVE
     Dosage: 5 MG, 2X/DAY
     Route: 048
     Dates: start: 201711
  3. XELJANZ [Suspect]
     Active Substance: TOFACITINIB CITRATE
     Indication: SPONDYLOARTHROPATHY
  4. ENTYVIO [Concomitant]
     Active Substance: VEDOLIZUMAB
     Indication: IRRITABLE BOWEL SYNDROME
     Dosage: UNK
     Route: 042

REACTIONS (8)
  - Gastroenteritis [Unknown]
  - Drug intolerance [Unknown]
  - Disease recurrence [Unknown]
  - Condition aggravated [Unknown]
  - Therapy non-responder [Unknown]
  - Anal fissure haemorrhage [Unknown]
  - Ankylosing spondylitis [Unknown]
  - Constipation [Unknown]
